FAERS Safety Report 4483901-8 (Version None)
Quarter: 2004Q4

REPORT INFORMATION
  Report Type: 
  Country: None (occurrence: None)
  Receive Date: 20041020
  Receipt Date: 20040930
  Transmission Date: 20050328
  Serious: Yes (Other)
  Sender: FDA-Public Use
  Company Number: USA040979735

PATIENT
  Sex: Female

DRUGS (8)
  1. LENTE ILETIN (BEEF-PORK) INSULIN ZINC [Suspect]
     Indication: PANCREATIC DISORDER
     Dates: start: 19800101
  2. ILETIN-BEED/PORK REGULAR INSULIN (INSULIN, ANIMAL) [Suspect]
     Indication: PANCREATIC DISORDER
     Dates: start: 19800101
  3. HUMULIN L [Suspect]
     Indication: PANCREATIC DISORDER
  4. HUMULIN R [Suspect]
     Indication: PANCREATIC DISORDER
  5. HUMULIN N [Suspect]
     Indication: PANCREATIC DISORDER
  6. ULTRA-LENTE ILETIN INSULIN [Suspect]
     Indication: PANCREATIC DISORDER
  7. HUMULIN N [Suspect]
     Indication: PANCREATIC DISORDER
  8. HUMULIN U [Suspect]
     Indication: PANCREATIC DISORDER

REACTIONS (8)
  - ABASIA [None]
  - ADVERSE DRUG REACTION [None]
  - BLOOD GLUCOSE DECREASED [None]
  - CARDIOVASCULAR DISORDER [None]
  - ILL-DEFINED DISORDER [None]
  - KNEE ARTHROPLASTY [None]
  - PARALYSIS [None]
  - STENT PLACEMENT [None]
